FAERS Safety Report 8877077 (Version 2)
Quarter: 2013Q1

REPORT INFORMATION
  Report Type: Spontaneous
  Country: US (occurrence: US)
  Receive Date: 20121029
  Receipt Date: 20130301
  Transmission Date: 20140127
  Serious: Yes (Other)
  Sender: FDA-Public Use
  Company Number: US-BAYER-2012-110398

PATIENT
  Age: 32 Year
  Sex: Female
  Weight: 62.13 kg

DRUGS (3)
  1. MIRENA [Suspect]
     Indication: CONTRACEPTION
     Dosage: 20 MCG/24HR, CONT
     Route: 015
     Dates: start: 20120221, end: 20121012
  2. VALTREX [Concomitant]
     Dosage: UNK UNK, PRN
  3. MULTIVITAMINS [Concomitant]
     Dosage: UNK; DAILY

REACTIONS (2)
  - Vaginal haemorrhage [Recovered/Resolved]
  - Device expulsion [None]
